FAERS Safety Report 7457238-9 (Version None)
Quarter: 2011Q2

REPORT INFORMATION
  Report Type: 
  Country: None (occurrence: None)
  Receive Date: 20110504
  Receipt Date: 20110428
  Transmission Date: 20111010
  Serious: Yes (Other)
  Sender: FDA-Public Use
  Company Number: US-PFIZER INC-2011092674

PATIENT
  Sex: Male
  Weight: 73.016 kg

DRUGS (9)
  1. VFEND [Suspect]
     Indication: BRONCHOPULMONARY ASPERGILLOSIS
     Dosage: 200 MG, 2X/DAY
     Dates: start: 20110422, end: 20110424
  2. CEFEPIME [Concomitant]
     Indication: PYREXIA
     Dosage: 2 G, EVERY EIGHT HOURS
  3. VFEND [Suspect]
     Dosage: 400 MG, 2X/DAY
     Dates: start: 20110425, end: 20110425
  4. VFEND [Suspect]
     Dosage: 300 MG, 2X/DAY
     Dates: start: 20110426
  5. TACROLIMUS [Concomitant]
     Indication: GRAFT VERSUS HOST DISEASE
     Dosage: 0.7 MG, 1X/DAY
  6. URSODIOL [Concomitant]
     Indication: LIVER DISORDER
     Dosage: 250 MG, 3X/DAY
  7. ACYCLOVIR [Concomitant]
     Indication: GENITAL HERPES
     Dosage: 400 MG, 2X/DAY
  8. ESOMEPRAZOLE [Concomitant]
     Indication: PROPHYLAXIS
     Dosage: 20 MG, 1X/DAY
  9. SUCRALFATE [Concomitant]
     Indication: CALCULUS URINARY
     Dosage: 1 G, 3X/DAY

REACTIONS (2)
  - DIABETES INSIPIDUS [None]
  - URINE OUTPUT INCREASED [None]
